FAERS Safety Report 22760079 (Version 2)
Quarter: 2024Q3

REPORT INFORMATION
  Report Type: Spontaneous
  Country: FR (occurrence: FR)
  Receive Date: 20230728
  Receipt Date: 20240828
  Transmission Date: 20241016
  Serious: Yes (Death, Life-Threatening)
  Sender: ACCORD
  Company Number: None

PATIENT
  Age: 69 Year
  Sex: Female
  Weight: 73 kg

DRUGS (10)
  1. FLUOXETINE HYDROCHLORIDE [Suspect]
     Active Substance: FLUOXETINE HYDROCHLORIDE
     Indication: Mixed anxiety and depressive disorder
     Dates: end: 20230126
  2. ASPIRIN DL-LYSINE [Suspect]
     Active Substance: ASPIRIN DL-LYSINE
     Indication: Prophylaxis
     Dosage: CHILDREN 250, POWDER FOR ORAL SOLUTION IN SACHET-DOSE
     Dates: end: 20230126
  3. ARIXTRA [Suspect]
     Active Substance: FONDAPARINUX SODIUM
     Indication: Deep vein thrombosis
     Dosage: STRENGTH: 5 MG/0.4 ML, SOLUTION FOR INJECTION IN PRE-FILLED SYRINGE
     Dates: start: 20230119, end: 20230126
  4. IRBESARTAN [Concomitant]
     Active Substance: IRBESARTAN
  5. INSULIN GLARGINE [Concomitant]
     Active Substance: INSULIN GLARGINE
  6. ACTRAPID [Concomitant]
     Active Substance: INSULIN HUMAN
  7. LEVOTHYROXINE SODIUM [Concomitant]
     Active Substance: LEVOTHYROXINE SODIUM
  8. ALPRAZOLAM [Concomitant]
     Active Substance: ALPRAZOLAM
  9. METFORMIN\SITAGLIPTIN [Concomitant]
     Active Substance: METFORMIN\SITAGLIPTIN
  10. SIMVASTATIN [Concomitant]
     Active Substance: SIMVASTATIN

REACTIONS (1)
  - Brain stem haematoma [Fatal]

NARRATIVE: CASE EVENT DATE: 20230127
